FAERS Safety Report 20108386 (Version 8)
Quarter: 2023Q4

REPORT INFORMATION
  Report Type: Spontaneous
  Country: US (occurrence: US)
  Receive Date: 20211124
  Receipt Date: 20231113
  Transmission Date: 20240109
  Serious: No
  Sender: FDA-Public Use
  Company Number: US-PFIZER INC-202101449364

PATIENT
  Age: 12 Year
  Sex: Male

DRUGS (4)
  1. GENOTROPIN [Suspect]
     Active Substance: SOMATROPIN
     Dosage: 1.4 MG
     Dates: start: 202108
  2. GENOTROPIN [Suspect]
     Active Substance: SOMATROPIN
     Dosage: UNK
     Dates: start: 202110
  3. GENOTROPIN [Suspect]
     Active Substance: SOMATROPIN
     Dosage: 1.8 MG, 6 DAYS/WEEK
  4. GENOTROPIN [Suspect]
     Active Substance: SOMATROPIN
     Dosage: 1.8 MG ALTERNATING WITH 2.0 MG

REACTIONS (6)
  - Injection site pain [Unknown]
  - Intentional product use issue [Unknown]
  - Wrong technique in device usage process [Unknown]
  - Device difficult to use [Unknown]
  - Poor quality device used [Unknown]
  - Device leakage [Unknown]

NARRATIVE: CASE EVENT DATE: 20211001
